FAERS Safety Report 5373062-5 (Version None)
Quarter: 2007Q2

REPORT INFORMATION
  Report Type: 
  Country: None (occurrence: None)
  Receive Date: 20070619
  Receipt Date: 20070404
  Transmission Date: 20071010
  Serious: No
  Sender: FDA-Public Use
  Company Number: 2007US000934

PATIENT
  Age: 68 Year
  Sex: Male

DRUGS (5)
  1. VESICARE [Suspect]
     Indication: HYPERTONIC BLADDER
     Dosage: 5 MG, UNK, ORAL  10 MG, UNK, ORAL
     Route: 048
     Dates: start: 20070307, end: 20070301
  2. VESICARE [Suspect]
     Indication: HYPERTONIC BLADDER
     Dosage: 5 MG, UNK, ORAL  10 MG, UNK, ORAL
     Route: 048
     Dates: start: 20070301
  3. GLYBURIDE [Concomitant]
  4. ACTOS [Concomitant]
  5. FLOMAX [Concomitant]

REACTIONS (2)
  - DRY MOUTH [None]
  - HYPOGLYCAEMIA [None]
